FAERS Safety Report 8823201 (Version 2)
Quarter: 2013Q1

REPORT INFORMATION
  Report Type: Report from Study
  Country: US (occurrence: US)
  Receive Date: 20121003
  Receipt Date: 20130109
  Transmission Date: 20140127
  Serious: Yes (Other)
  Sender: FDA-Public Use
  Company Number: US-US-EMD SERONO, INC.-7164132

PATIENT
  Sex: Female

DRUGS (3)
  1. REBIF [Suspect]
     Indication: PRODUCT USED FOR UNKNOWN INDICATION
     Dates: start: 20060323, end: 20120917
  2. REBIF [Suspect]
     Route: 058
     Dates: start: 201212
  3. TAMOXIFEN [Suspect]
     Indication: BREAST CANCER

REACTIONS (6)
  - Uterine cancer [Unknown]
  - Breast cancer [Unknown]
  - Pneumonia [Unknown]
  - Kidney infection [Unknown]
  - Urinary tract infection [Unknown]
  - Muscle spasms [Unknown]
